FAERS Safety Report 23033006 (Version 1)
Quarter: 2023Q4

REPORT INFORMATION
  Report Type: Spontaneous
  Country: RO (occurrence: None)
  Receive Date: 20231005
  Receipt Date: 20231005
  Transmission Date: 20240109
  Serious: Yes (Other)
  Sender: FDA-Public Use
  Company Number: RO-ROCHE-3413399

PATIENT
  Sex: Male

DRUGS (1)
  1. OCREVUS [Suspect]
     Active Substance: OCRELIZUMAB
     Indication: Product used for unknown indication
     Dosage: THE LAST ADMINISTRATION OF OCREVUS WAS IN 13/JUL/2022, /AUG/2022
     Route: 064
     Dates: start: 202007

REACTIONS (2)
  - Foetal exposure during pregnancy [Unknown]
  - Lymphopenia [Recovered/Resolved]
